FAERS Safety Report 12083753 (Version 8)
Quarter: 2016Q4

REPORT INFORMATION
  Report Type: Report from Study
  Country: JP (occurrence: JP)
  Receive Date: 20160217
  Receipt Date: 20161220
  Transmission Date: 20170206
  Serious: Yes (Hospitalization, Other)
  Sender: FDA-Public Use
  Company Number: JP-INCYTE CORPORATION-2016IN000794

PATIENT
  Age: 81 Year
  Sex: Male
  Weight: 53.2 kg

DRUGS (6)
  1. FEBURIC [Concomitant]
     Active Substance: FEBUXOSTAT
     Indication: PRIMARY MYELOFIBROSIS
     Dosage: 20 MG, UNK
  2. JAKAVI [Suspect]
     Active Substance: RUXOLITINIB
     Dosage: 5 MG, QD
     Route: 048
     Dates: start: 20160120
  3. JAKAVI [Suspect]
     Active Substance: RUXOLITINIB
     Dosage: 5 MG, BID
     Route: 048
     Dates: start: 20150227, end: 20150904
  4. METENOLONE [Concomitant]
     Active Substance: METHENOLONE ENANTHATE
     Indication: PRIMARY MYELOFIBROSIS
     Dosage: 10 MG, UNK
     Route: 048
  5. JAKAVI [Suspect]
     Active Substance: RUXOLITINIB
     Dosage: 10 MG, BID
     Route: 048
     Dates: start: 20150905, end: 20160118
  6. JAKAVI [Suspect]
     Active Substance: RUXOLITINIB
     Indication: PRIMARY MYELOFIBROSIS
     Dosage: 2.5 MG, BID
     Route: 048
     Dates: start: 201502

REACTIONS (7)
  - Hepatic function abnormal [Recovered/Resolved]
  - Hepatitis B [Recovering/Resolving]
  - Ascites [Not Recovered/Not Resolved]
  - Haemoglobin decreased [Unknown]
  - Pneumonia bacterial [Recovering/Resolving]
  - Cardiac failure [Not Recovered/Not Resolved]
  - Myelofibrosis [Not Recovered/Not Resolved]

NARRATIVE: CASE EVENT DATE: 20150807
